FAERS Safety Report 6226006-8 (Version None)
Quarter: 2009Q2

REPORT INFORMATION
  Report Type: 
  Country: None (occurrence: None)
  Receive Date: 20090612
  Receipt Date: 20090602
  Transmission Date: 20091009
  Serious: Yes (Death, Other)
  Sender: FDA-Public Use
  Company Number: DE-PFIZER INC-2009221260

PATIENT
  Age: 81 Year

DRUGS (5)
  1. SUNITINIB MALATE [Suspect]
     Indication: METASTATIC RENAL CELL CARCINOMA
     Dosage: 50 MG, 1X/DAY
     Route: 048
     Dates: start: 20090417
  2. DEXAMETHASONE [Concomitant]
     Indication: BRAIN COMPRESSION
     Dosage: 4 MG, 2X/DAY
     Dates: start: 20090405
  3. MACROGOL [Concomitant]
  4. METOCLOPRAMIDE [Concomitant]
     Dosage: 30 GTT, 3X/DAY
  5. PANTOPRAZOL [Concomitant]
     Dosage: 20 MG, 1X/DAY

REACTIONS (3)
  - INTESTINAL PERFORATION [None]
  - PERITONITIS [None]
  - SEPTIC SHOCK [None]
